FAERS Safety Report 17309292 (Version 4)
Quarter: 2024Q4

REPORT INFORMATION
  Report Type: Spontaneous
  Country: US (occurrence: US)
  Receive Date: 20200123
  Receipt Date: 20241121
  Transmission Date: 20250114
  Serious: No
  Sender: TEVA
  Company Number: US-TEVA-2020-US-1168439

PATIENT
  Age: 52 Year
  Sex: Male

DRUGS (2)
  1. AJOVY [Suspect]
     Active Substance: FREMANEZUMAB-VFRM
     Indication: Migraine
     Dosage: UNKNOWN
     Route: 065
     Dates: start: 201905
  2. AJOVY [Suspect]
     Active Substance: FREMANEZUMAB-VFRM
     Dosage: UNKNOWN
     Route: 065
     Dates: start: 201909

REACTIONS (2)
  - Migraine [Not Recovered/Not Resolved]
  - Adverse drug reaction [Not Recovered/Not Resolved]

NARRATIVE: CASE EVENT DATE: 20190901
